FAERS Safety Report 8379139-4 (Version None)
Quarter: 2012Q2

REPORT INFORMATION
  Report Type: 
  Country: None (occurrence: None)
  Receive Date: 20120523
  Receipt Date: 20120511
  Transmission Date: 20120825
  Serious: Yes (Hospitalization, Other)
  Sender: FDA-Public Use
  Company Number: US-AMGEN-USASP2012031091

PATIENT
  Age: 70 Year
  Sex: Female
  Weight: 73.923 kg

DRUGS (6)
  1. REMICADE [Concomitant]
     Indication: RHEUMATOID ARTHRITIS
  2. LASIX [Concomitant]
     Indication: PHLEBITIS
     Dosage: 40 MG, QD
     Route: 048
     Dates: start: 19920101, end: 20110901
  3. GLUCOPHAGE [Concomitant]
     Indication: DIABETES MELLITUS
     Dosage: 500 MG, QD
     Route: 048
     Dates: start: 19920101
  4. REMICADE [Concomitant]
     Indication: PSORIATIC ARTHROPATHY
     Dosage: UNK UNK, Q8WK
     Route: 042
     Dates: start: 20110401, end: 20111001
  5. LASIX [Concomitant]
     Dosage: 80 MG, QD
     Route: 048
     Dates: start: 20110901
  6. PROCRIT [Suspect]
     Indication: ANAEMIA
     Dosage: UNK
     Route: 058
     Dates: start: 19920101

REACTIONS (9)
  - HAEMATOCRIT DECREASED [None]
  - OEDEMA [None]
  - BLOOD GLUCOSE DECREASED [None]
  - OSTEOMYELITIS [None]
  - WEIGHT FLUCTUATION [None]
  - UNRESPONSIVE TO STIMULI [None]
  - THROMBOPHLEBITIS SUPERFICIAL [None]
  - THERAPEUTIC RESPONSE DECREASED [None]
  - IMPAIRED HEALING [None]
